FAERS Safety Report 8763820 (Version 1)
Quarter: 2012Q4

REPORT INFORMATION
  Report Type: 
  Country: JP (occurrence: JP)
  Receive Date: 20120831
  Receipt Date: 20120831
  Transmission Date: 20130627
  Serious: Yes (Other)
  Sender: FDA-Public Use
  Company Number: JP-009507513-2012SP014422

PATIENT

DRUGS (6)
  1. PEGINTERFERON ALFA-2B [Suspect]
     Indication: HEPATITIS C
     Dosage: 1.5 ?g/kg, QW
     Route: 058
     Dates: start: 20120208
  2. REBETOL [Suspect]
     Indication: HEPATITIS C
     Dosage: 600 mg, QD
     Route: 048
     Dates: start: 20120208
  3. TELAVIC [Suspect]
     Indication: HEPATITIS C
     Dosage: 2250 mg, QD
     Route: 048
     Dates: start: 20120208, end: 20120210
  4. URSO [Concomitant]
     Indication: HEPATITIS C
     Dosage: FORMULATION: POR
     Route: 048
     Dates: start: 20100119
  5. URSO [Concomitant]
     Indication: CHOLELITHIASIS
     Dosage: 600 mg, qd
     Route: 048
  6. ADETPHOS [Concomitant]
     Indication: DIZZINESS
     Dosage: 1T/day, as needed
     Route: 048
     Dates: start: 20120307, end: 20120404

REACTIONS (1)
  - Renal impairment [Recovered/Resolved]
